FAERS Safety Report 7153925-0 (Version None)
Quarter: 2010Q4

REPORT INFORMATION
  Report Type: 
  Country: None (occurrence: None)
  Receive Date: 20101213
  Receipt Date: 20101201
  Transmission Date: 20110411
  Serious: Yes (Other)
  Sender: FDA-Public Use
  Company Number: PHHY2010CA81813

PATIENT
  Sex: Female

DRUGS (2)
  1. ACLASTA [Suspect]
     Dosage: 5MG/100ML, ONCE A YEAR
     Route: 042
     Dates: start: 20100106
  2. CORTIZONE [Concomitant]

REACTIONS (3)
  - OSTEOARTHRITIS [None]
  - SHOULDER OPERATION [None]
  - TOOTH DISORDER [None]
